FAERS Safety Report 12491628 (Version 1)
Quarter: 2016Q2

REPORT INFORMATION
  Report Type: Spontaneous
  Country: US (occurrence: US)
  Receive Date: 20160623
  Receipt Date: 20160623
  Transmission Date: 20160815
  Serious: No
  Sender: FDA-Public Use
  Company Number: US-PFIZER INC-2016292149

PATIENT
  Sex: Female
  Weight: 78.93 kg

DRUGS (1)
  1. XANAX [Suspect]
     Active Substance: ALPRAZOLAM
     Indication: SEIZURE
     Dosage: 0.5 MG, SHE USUALLY TAKES 1-1.5 TABLETS
     Route: 048

REACTIONS (1)
  - Drug ineffective for unapproved indication [Unknown]
